FAERS Safety Report 5178110-3 (Version None)
Quarter: 2006Q4

REPORT INFORMATION
  Report Type: 
  Country: None (occurrence: None)
  Receive Date: 20061208
  Receipt Date: 20061204
  Transmission Date: 20070319
  Serious: Yes (Death, Hospitalization, Other)
  Sender: FDA-Public Use
  Company Number: 163-21880-06110660

PATIENT
  Age: 93 Year
  Sex: Male

DRUGS (18)
  1. REVLIMID [Suspect]
     Indication: MULTIPLE MYELOMA
     Dosage: 10 MG, 1 IN 1 D, ORAL
     Route: 048
     Dates: start: 20060929, end: 20060101
  2. DEXAMETHASONE TAB [Suspect]
     Indication: DRUG USE FOR UNKNOWN INDICATION
     Dosage: X4 DAYS
     Dates: start: 20030203
  3. GLUCOSAMINE W/CHONDROITIN SULFATE (GLUCOSAMINE W/CHONDROITIN SULFATE) [Suspect]
  4. ZOMETA [Concomitant]
  5. DARVOCET-N 50 [Concomitant]
  6. LISINOPRIL [Concomitant]
  7. POTASSIUM CHLORIDE [Concomitant]
  8. GLYCOLAX (MACROGOL) [Concomitant]
  9. CALCIUM WITH VITAMIN D [Concomitant]
  10. ASPIRIN [Concomitant]
  11. HYDROCHLOROTHIAZIDE [Concomitant]
  12. DEMADEX [Concomitant]
  13. SENOKOT [Concomitant]
  14. ARANESP [Concomitant]
  15. FERRLECIT (FERRIC SODIUM GLUCONATE COMPLEX) [Concomitant]
  16. PRILOSEC [Concomitant]
  17. LORTAB [Concomitant]
  18. RISPERDAL [Concomitant]

REACTIONS (7)
  - DEHYDRATION [None]
  - GASTROENTERITIS VIRAL [None]
  - GENERAL PHYSICAL HEALTH DETERIORATION [None]
  - MENTAL STATUS CHANGES [None]
  - MOBILITY DECREASED [None]
  - RENAL FAILURE [None]
  - URINARY INCONTINENCE [None]
